FAERS Safety Report 9990978 (Version 1)
Quarter: 2014Q1

REPORT INFORMATION
  Report Type: Report from Study
  Country: US (occurrence: US)
  Receive Date: 20140310
  Receipt Date: 20140310
  Transmission Date: 20141002
  Serious: No
  Sender: FDA-Public Use
  Company Number: US-ABBVIE-13P-163-1131476-00

PATIENT
  Age: 70 Year
  Sex: Male

DRUGS (9)
  1. HUMIRA [Suspect]
     Indication: PSORIATIC ARTHROPATHY
     Dates: start: 20130725, end: 20130725
  2. HUMIRA [Suspect]
     Dates: start: 20130801, end: 20130801
  3. HUMIRA [Suspect]
     Dates: start: 20130814
  4. TRAMADOL [Concomitant]
     Indication: PAIN
     Dosage: 4 TO 6 TIMES DAILY
  5. DOXAZOSIN [Concomitant]
     Indication: BLOOD PRESSURE
  6. ATENOLOL [Concomitant]
     Indication: BLOOD PRESSURE
  7. PRAVASTATIN [Concomitant]
     Indication: BLOOD CHOLESTEROL INCREASED
  8. LEVEMIR [Concomitant]
     Indication: DIABETES MELLITUS
  9. NOVALOG [Concomitant]
     Indication: DIABETES MELLITUS

REACTIONS (6)
  - Dyspnoea [Not Recovered/Not Resolved]
  - Psoriatic arthropathy [Not Recovered/Not Resolved]
  - Asthma [Not Recovered/Not Resolved]
  - Chest discomfort [Not Recovered/Not Resolved]
  - Pyrexia [Not Recovered/Not Resolved]
  - Arthralgia [Not Recovered/Not Resolved]
